FAERS Safety Report 22191203 (Version 1)
Quarter: 2023Q2

REPORT INFORMATION
  Report Type: Spontaneous
  Country: NL (occurrence: NL)
  Receive Date: 20230410
  Receipt Date: 20230410
  Transmission Date: 20230721
  Serious: Yes (Other)
  Sender: FDA-Public Use
  Company Number: None

PATIENT
  Sex: Male
  Weight: 62.4 kg

DRUGS (9)
  1. FUROSEMIDE [Suspect]
     Active Substance: FUROSEMIDE
     Indication: Cardiac failure
     Dosage: STRENGTH: 10 MG/ML, 2X PER DAY 80MG
     Dates: start: 20230306, end: 20230307
  2. APIXABAN [Concomitant]
     Active Substance: APIXABAN
     Dosage: STRENGTH: 2.5 MG, 2,5 MG
  3. ASCORBIC ACID [Concomitant]
     Active Substance: ASCORBIC ACID
     Dosage: STRENGTH: 500 MG
  4. FENOTEROL HYDROBROMIDE\IPRATROPIUM BROMIDE [Concomitant]
     Active Substance: FENOTEROL HYDROBROMIDE\IPRATROPIUM BROMIDE
     Dosage: AEROSOL, 50/20 UG/DO, AEROSOL?SPRAY 200 DO + INHALER
  5. CALCIUM\CHOLECALCIFEROL [Concomitant]
     Active Substance: CALCIUM\CHOLECALCIFEROL
     Dosage: STRENGTH: 500 MG/800 IU, 500 MG/800 UNITS
  6. COMBIVENT [Concomitant]
     Active Substance: ALBUTEROL SULFATE\IPRATROPIUM BROMIDE
     Dosage: 1/0.2 MG/ML, UNIT DOSE NEBULIZER SOLUTION VIAL 2.5 ML, 1/0.2 MG/ML
  7. GLYCOPYRRONIUM/ FORMOTEROL [Concomitant]
     Dosage: AEROSOL, STRENGTH: 7.2/5 MCG/DO SPBS 120 DO, 7.2/5 MCG/DOSE
  8. METOPROLOL SUCCINATE [Concomitant]
     Active Substance: METOPROLOL SUCCINATE
     Dosage: STRENGTH: 25 MG, TABLET MGA
  9. PREDNISOLONE [Concomitant]
     Active Substance: PREDNISOLONE
     Dosage: STRENGTH: 40 MG

REACTIONS (1)
  - Acute kidney injury [Unknown]
